FAERS Safety Report 4863421-9 (Version None)
Quarter: 2005Q4

REPORT INFORMATION
  Report Type: 
  Country: None (occurrence: None)
  Receive Date: 20051222
  Receipt Date: 20041230
  Transmission Date: 20060501
  Serious: No
  Sender: FDA-Public Use
  Company Number: US-GLAXOSMITHKLINE-A0538840A

PATIENT
  Age: 79 Year
  Sex: Male

DRUGS (16)
  1. FLONASE [Suspect]
     Dosage: 1SPR PER DAY
     Route: 045
  2. METOPROLOL [Concomitant]
  3. NORVASC [Concomitant]
  4. FUROSEMIDE [Concomitant]
  5. PLAVIX [Concomitant]
  6. ASPIRIN [Concomitant]
  7. CAPTOPRIL [Concomitant]
  8. LIPITOR [Concomitant]
  9. MULTI-VITAMIN [Concomitant]
  10. POTASSIUM [Concomitant]
  11. VITAMIN E [Concomitant]
     Route: 048
  12. GLIPIZIDE [Concomitant]
  13. FISH OIL [Concomitant]
  14. SAW PALMETTO [Concomitant]
  15. CRANBERRY [Concomitant]
     Route: 048
  16. ALLERGY MEDICATION [Concomitant]

REACTIONS (1)
  - EPISTAXIS [None]
